FAERS Safety Report 16594776 (Version 1)
Quarter: 2019Q3

REPORT INFORMATION
  Report Type: Spontaneous
  Country: US (occurrence: US)
  Receive Date: 20190718
  Receipt Date: 20190718
  Transmission Date: 20191004
  Serious: Yes (Death, Other)
  Sender: FDA-Public Use
  Company Number: US-AMGEN-USASP2019113293

PATIENT

DRUGS (2)
  1. EPOETIN ALFA [Suspect]
     Active Substance: ERYTHROPOIETIN
     Indication: NEPHROGENIC ANAEMIA
     Dosage: UNK, ONE TO THREE TIMES PER WEEK
     Route: 042
  2. METHOXY POLYETHYLENE GLYCOL-EPOETIN BETA. [Suspect]
     Active Substance: METHOXY POLYETHYLENE GLYCOL-EPOETIN BETA
     Indication: NEPHROGENIC ANAEMIA
     Dosage: EVERY 2 WEEKS OR EVERY 4 WEEKS
     Route: 042

REACTIONS (24)
  - Haemoglobin decreased [Unknown]
  - Hypertension [Unknown]
  - Upper respiratory tract infection [Unknown]
  - Nasopharyngitis [Unknown]
  - Adverse event [Unknown]
  - Gastrointestinal disorder [Unknown]
  - Angiopathy [Unknown]
  - Renal transplant [Unknown]
  - Cardiac disorder [Unknown]
  - Infection [Unknown]
  - Arteriovenous graft thrombosis [Unknown]
  - Nervous system disorder [Unknown]
  - Headache [Unknown]
  - Diarrhoea [Unknown]
  - Blood iron abnormal [Unknown]
  - Cerebral disorder [Unknown]
  - Renal disorder [Unknown]
  - Sepsis [Unknown]
  - Pneumonia [Unknown]
  - Death [Fatal]
  - Haemorrhage [Unknown]
  - Fluid overload [Unknown]
  - Muscle spasms [Unknown]
  - Neoplasm [Unknown]
